FAERS Safety Report 24391414 (Version 2)
Quarter: 2024Q4

REPORT INFORMATION
  Report Type: Spontaneous
  Country: MX (occurrence: MX)
  Receive Date: 20241003
  Receipt Date: 20241007
  Transmission Date: 20250115
  Serious: Yes (Other)
  Sender: PFIZER
  Company Number: MX-PFIZER INC-PV202400128477

PATIENT
  Age: 13 Year
  Sex: Female

DRUGS (1)
  1. METHOTREXATE SODIUM [Suspect]
     Active Substance: METHOTREXATE SODIUM
     Indication: Osteosarcoma
     Dosage: UNK

REACTIONS (1)
  - Anaphylactic reaction [Recovered/Resolved]
